FAERS Safety Report 4303523-9 (Version None)
Quarter: 2004Q1

REPORT INFORMATION
  Report Type: 
  Country: None (occurrence: None)
  Receive Date: 20040225
  Receipt Date: 20040119
  Transmission Date: 20041129
  Serious: Yes (Hospitalization)
  Sender: FDA-Public Use
  Company Number: 200410122JP

PATIENT
  Age: 69 Year
  Sex: Male
  Weight: 52 kg

DRUGS (8)
  1. TAXOTERE [Suspect]
     Indication: NEOPLASM MALIGNANT
     Route: 013
     Dates: start: 20030805, end: 20030805
  2. BRIPLATIN [Concomitant]
     Indication: NEOPLASM MALIGNANT
     Route: 041
     Dates: start: 20030806, end: 20030806
  3. FLUOROURACIL [Concomitant]
     Indication: NEOPLASM MALIGNANT
     Route: 041
     Dates: start: 20030806, end: 20030811
  4. HYDROCORTONE [Concomitant]
     Indication: SHOCK
     Route: 013
     Dates: start: 20030805, end: 20030805
  5. ATROPINE SULFATE [Concomitant]
     Indication: PREMEDICATION
     Route: 030
     Dates: start: 20030805, end: 20030805
  6. ATARAX [Concomitant]
     Indication: PREMEDICATION
     Route: 030
     Dates: start: 20030805, end: 20030805
  7. ATARAX [Concomitant]
     Indication: SEDATION
     Route: 030
     Dates: start: 20030805, end: 20030805
  8. TIENAM [Concomitant]
     Indication: EMBOLISM
     Route: 013
     Dates: start: 20030805, end: 20030805

REACTIONS (16)
  - BLOOD ALKALINE PHOSPHATASE INCREASED [None]
  - BLOOD CHLORIDE DECREASED [None]
  - BLOOD LACTATE DEHYDROGENASE INCREASED [None]
  - BLOOD POTASSIUM DECREASED [None]
  - BLOOD UREA INCREASED [None]
  - DEHYDRATION [None]
  - DYSPHAGIA [None]
  - HAEMATOCRIT DECREASED [None]
  - HAEMOGLOBIN DECREASED [None]
  - MARKEDLY REDUCED DIETARY INTAKE [None]
  - MUCOUS MEMBRANE DISORDER [None]
  - PHARYNGOLARYNGEAL PAIN [None]
  - PLATELET COUNT DECREASED [None]
  - RED BLOOD CELL COUNT DECREASED [None]
  - THROMBOSIS [None]
  - WHITE BLOOD CELL COUNT DECREASED [None]
